FAERS Safety Report 22134469 (Version 2)
Quarter: 2023Q2

REPORT INFORMATION
  Report Type: Spontaneous
  Country: FR (occurrence: FR)
  Receive Date: 20230324
  Receipt Date: 20230509
  Transmission Date: 20230721
  Serious: Yes (Death)
  Sender: FDA-Public Use
  Company Number: None

PATIENT
  Age: 73 Year
  Sex: Male
  Weight: 75 kg

DRUGS (24)
  1. IRINOTECAN [Suspect]
     Active Substance: IRINOTECAN
     Indication: Adenocarcinoma of colon
     Dosage: UNKNOWN
     Route: 065
     Dates: start: 20221018, end: 20221018
  2. IRINOTECAN [Suspect]
     Active Substance: IRINOTECAN
     Dosage: UNKNOWN
     Route: 065
     Dates: start: 20221031, end: 20221031
  3. IRINOTECAN [Suspect]
     Active Substance: IRINOTECAN
     Dosage: UNKNOWN
     Route: 065
     Dates: start: 20221213, end: 20221213
  4. IRINOTECAN [Suspect]
     Active Substance: IRINOTECAN
     Dosage: UNKNOWN
     Route: 065
     Dates: start: 20230103, end: 20230103
  5. IRINOTECAN [Suspect]
     Active Substance: IRINOTECAN
     Dosage: UNKNOWN
     Route: 065
     Dates: start: 20220915, end: 20220915
  6. IRINOTECAN [Suspect]
     Active Substance: IRINOTECAN
     Dosage: UNKNOWN
     Route: 065
     Dates: start: 20221004, end: 20221004
  7. IRINOTECAN [Suspect]
     Active Substance: IRINOTECAN
     Dosage: UNKNOWN
     Route: 065
     Dates: start: 20230130, end: 20230130
  8. IRINOTECAN [Suspect]
     Active Substance: IRINOTECAN
     Dosage: UNKNOWN
     Route: 065
     Dates: start: 20221115, end: 20221115
  9. FLUOROURACIL [Suspect]
     Active Substance: FLUOROURACIL
     Indication: Adenocarcinoma of colon
     Dosage: UNKNOWN
     Route: 065
     Dates: start: 20221004, end: 20221004
  10. FLUOROURACIL [Suspect]
     Active Substance: FLUOROURACIL
     Dosage: UNKNOWN
     Route: 065
     Dates: start: 20221031, end: 20221031
  11. FLUOROURACIL [Suspect]
     Active Substance: FLUOROURACIL
     Dosage: UNKNOWN
     Route: 065
     Dates: start: 20230130, end: 20230130
  12. FLUOROURACIL [Suspect]
     Active Substance: FLUOROURACIL
     Dosage: UNKNOWN
     Route: 065
     Dates: start: 20221018, end: 20221018
  13. FLUOROURACIL [Suspect]
     Active Substance: FLUOROURACIL
     Dosage: UNKNOWN
     Route: 065
     Dates: start: 20220915, end: 20220915
  14. AVASTIN [Suspect]
     Active Substance: BEVACIZUMAB
     Indication: Adenocarcinoma of colon
     Route: 065
     Dates: start: 20221115, end: 20221115
  15. AVASTIN [Suspect]
     Active Substance: BEVACIZUMAB
     Route: 065
     Dates: start: 20221213, end: 20221213
  16. AVASTIN [Suspect]
     Active Substance: BEVACIZUMAB
     Route: 065
     Dates: start: 20230103, end: 20230103
  17. CAPECITABINE [Suspect]
     Active Substance: CAPECITABINE
     Indication: Adenocarcinoma of colon
     Dosage: UNKNOWN
     Route: 065
     Dates: start: 20221115, end: 20221115
  18. CAPECITABINE [Suspect]
     Active Substance: CAPECITABINE
     Dosage: UNKNOWN
     Route: 065
     Dates: start: 20221213, end: 20221213
  19. CAPECITABINE [Suspect]
     Active Substance: CAPECITABINE
     Dosage: UNKNOWN
     Route: 065
     Dates: start: 20230103, end: 20230103
  20. ZALTRAP [Suspect]
     Active Substance: ZIV-AFLIBERCEPT
     Indication: Adenocarcinoma of colon
     Dosage: UNKNOWN
     Route: 065
     Dates: start: 20230130, end: 20230130
  21. VECTIBIX [Concomitant]
     Active Substance: PANITUMUMAB
     Indication: Adenocarcinoma of colon
     Dosage: UNKNOWN
     Route: 065
     Dates: start: 20221004, end: 20221004
  22. VECTIBIX [Concomitant]
     Active Substance: PANITUMUMAB
     Dosage: UNKNOWN
     Route: 065
     Dates: start: 20221018, end: 20221018
  23. VECTIBIX [Concomitant]
     Active Substance: PANITUMUMAB
     Dosage: UNKNOWN
     Route: 065
     Dates: start: 20221031, end: 20221031
  24. VECTIBIX [Concomitant]
     Active Substance: PANITUMUMAB
     Dosage: UNKNOWN
     Route: 065
     Dates: start: 20220915, end: 20220915

REACTIONS (1)
  - Cerebrovascular accident [Fatal]

NARRATIVE: CASE EVENT DATE: 20230206
